FAERS Safety Report 18870939 (Version 1)
Quarter: 2021Q1

REPORT INFORMATION
  Report Type: Report from Study
  Country: GR (occurrence: GR)
  Receive Date: 20210209
  Receipt Date: 20210209
  Transmission Date: 20210420
  Serious: Yes (Other)
  Sender: FDA-Public Use
  Company Number: GR-BAUSCH-BL-2021-004125

PATIENT
  Age: 78 Year
  Sex: Male
  Weight: 83 kg

DRUGS (10)
  1. AVELOX [Concomitant]
     Active Substance: MOXIFLOXACIN HYDROCHLORIDE
     Indication: RESPIRATORY TRACT INFECTION
     Dosage: 800 MILLIGRAM, QD
     Route: 048
     Dates: start: 20200121, end: 20200123
  2. VALTREX [Concomitant]
     Active Substance: VALACYCLOVIR HYDROCHLORIDE
     Indication: PROPHYLAXIS
     Dosage: 500 MILLIGRAM, QD
     Route: 048
     Dates: start: 20190319
  3. DEXAMETHASONE. [Suspect]
     Active Substance: DEXAMETHASONE
     Dosage: 20 MILLIGRAM, DAYS 1, 8, 15
     Route: 042
     Dates: start: 20191220, end: 20200128
  4. AUGMENTIN (AMOXICILLIN;CLAVULANATE POTASSIUM) [Concomitant]
     Indication: RESPIRATORY TRACT INFECTION
     Dosage: 2 GRAM, QD
     Route: 048
     Dates: start: 20200113, end: 20200120
  5. DEXAMETHASONE. [Suspect]
     Active Substance: DEXAMETHASONE
     Indication: PLASMA CELL MYELOMA
     Dosage: 20 MILLIGRAM, QWK
     Route: 042
     Dates: start: 20190319, end: 20191220
  6. KYPROLIS [Suspect]
     Active Substance: CARFILZOMIB
     Dosage: 56 MILLIGRAM/SQ. METER, QWK
     Route: 042
     Dates: start: 20190326, end: 20200128
  7. FOSTER (PIROXICAM) [Concomitant]
     Active Substance: PIROXICAM
     Indication: RESPIRATORY TRACT INFECTION
     Dosage: 200 MICROGRAM, QD
     Route: 048
     Dates: start: 20200121, end: 20200123
  8. KYPROLIS [Suspect]
     Active Substance: CARFILZOMIB
     Indication: PLASMA CELL MYELOMA
     Dosage: 20 MILLIGRAM/SQ. METER, QWK
     Route: 042
     Dates: start: 20190319, end: 20190326
  9. KYPROLIS [Suspect]
     Active Substance: CARFILZOMIB
     Dosage: UNKNOWN
     Route: 042
  10. NORVASC [Concomitant]
     Active Substance: AMLODIPINE BESYLATE
     Indication: HYPERTENSION
     Dosage: 10 MILLIGRAM, QD
     Route: 048
     Dates: start: 20130101

REACTIONS (1)
  - Deep vein thrombosis [Recovered/Resolved]

NARRATIVE: CASE EVENT DATE: 20200228
